FAERS Safety Report 7509856-7 (Version None)
Quarter: 2011Q2

REPORT INFORMATION
  Report Type: 
  Country: None (occurrence: None)
  Receive Date: 20110527
  Receipt Date: 20110520
  Transmission Date: 20111010
  Serious: Yes (Hospitalization)
  Sender: FDA-Public Use
  Company Number: B0716495A

PATIENT
  Sex: Male
  Weight: 62 kg

DRUGS (3)
  1. PREDNISOLONE [Concomitant]
     Indication: MULTIPLE MYELOMA
     Dosage: 70MG PER DAY
     Route: 048
     Dates: start: 20110415, end: 20110418
  2. GABAPENTIN [Concomitant]
     Dosage: 1200MG PER DAY
     Route: 048
  3. ALKERAN [Suspect]
     Indication: MULTIPLE MYELOMA
     Dosage: 12MG PER DAY
     Route: 048
     Dates: start: 20110415, end: 20110418

REACTIONS (2)
  - RENAL FAILURE [None]
  - BLOOD CREATININE INCREASED [None]
